FAERS Safety Report 4552289-6 (Version None)
Quarter: 2005Q1

REPORT INFORMATION
  Report Type: 
  Country: None (occurrence: None)
  Receive Date: 20050114
  Receipt Date: 19950622
  Transmission Date: 20050727
  Serious: No
  Sender: FDA-Public Use
  Company Number: US-GLAXOSMITHKLINE-A0010433A

PATIENT
  Age: 58 Year
  Sex: Female

DRUGS (4)
  1. IMITREX [Suspect]
     Indication: MIGRAINE
     Dosage: 6MG AS REQUIRED
     Route: 058
     Dates: start: 19930401
  2. FIORINAL [Concomitant]
     Indication: MIGRAINE
     Dosage: 8TAB PER DAY
  3. INDERAL [Concomitant]
     Indication: MIGRAINE PROPHYLAXIS
  4. ELAVIL [Concomitant]
     Indication: MIGRAINE PROPHYLAXIS

REACTIONS (4)
  - DRUG INEFFECTIVE [None]
  - DYSPNOEA [None]
  - INJECTION SITE PAIN [None]
  - THROAT TIGHTNESS [None]
